FAERS Safety Report 8941192 (Version 2)
Quarter: 2013Q1

REPORT INFORMATION
  Report Type: Spontaneous
  Country: DE (occurrence: DE)
  Receive Date: 20121203
  Receipt Date: 20130125
  Transmission Date: 20140127
  Serious: Yes (Other)
  Sender: FDA-Public Use
  Company Number: DE-ROCHE-1161164

PATIENT
  Sex: Male
  Weight: 85.08 kg

DRUGS (8)
  1. XOLAIR [Suspect]
     Indication: ASTHMA
     Route: 058
     Dates: start: 2009
  2. XOLAIR [Suspect]
     Route: 058
  3. FLUTICASONE [Suspect]
     Indication: ASTHMA
     Route: 065
     Dates: start: 2012
  4. FLUTICASONE [Suspect]
     Route: 065
  5. FLUTICASONE [Suspect]
     Route: 065
  6. CORTISONE [Suspect]
     Indication: ASTHMA
     Route: 065
  7. MONTELUKAST [Concomitant]
  8. SALBUTAMOL [Concomitant]

REACTIONS (6)
  - Cushing^s syndrome [Unknown]
  - Asthma [Recovering/Resolving]
  - Overdose [Unknown]
  - Inappropriate schedule of drug administration [Unknown]
  - Skin striae [Unknown]
  - Weight increased [Unknown]
